FAERS Safety Report 5202192-3 (Version None)
Quarter: 2007Q1

REPORT INFORMATION
  Report Type: 
  Country: None (occurrence: None)
  Receive Date: 20070109
  Receipt Date: 20070103
  Transmission Date: 20070707
  Serious: Yes (Hospitalization, Other)
  Sender: FDA-Public Use
  Company Number: DE-BRISTOL-MYERS SQUIBB COMPANY-13631197

PATIENT
  Age: 52 Year
  Sex: Female
  Weight: 48 kg

DRUGS (9)
  1. CARBOPLATIN [Suspect]
     Indication: BREAST CANCER
     Dates: start: 20060828
  2. PEMETREXED DISODIUM [Suspect]
     Indication: BREAST CANCER
     Dates: start: 20060828
  3. LAFOL [Concomitant]
     Dates: start: 20060824
  4. DEXAMETHASONE [Concomitant]
     Dates: start: 20060828, end: 20060830
  5. EMEND [Concomitant]
     Dates: start: 20060828, end: 20060830
  6. COMBAREN [Concomitant]
     Dates: start: 20060925
  7. IBUHEXAL [Concomitant]
     Dates: start: 20060926
  8. VITAMIN B-12 [Concomitant]
     Dates: start: 20060818, end: 20060818
  9. PANTOPRAZOLE SODIUM [Concomitant]

REACTIONS (4)
  - HIP ARTHROPLASTY [None]
  - PATHOLOGICAL FRACTURE [None]
  - RADIOTHERAPY [None]
  - THROMBOCYTOPENIA [None]
